FAERS Safety Report 5933698-7 (Version None)
Quarter: 2008Q4

REPORT INFORMATION
  Report Type: 
  Country: None (occurrence: None)
  Receive Date: 20081029
  Receipt Date: 20081024
  Transmission Date: 20090506
  Serious: Yes (Death)
  Sender: FDA-Public Use
  Company Number: JP-SANOFI-SYNTHELABO-F01200801637

PATIENT
  Sex: Male
  Weight: 49 kg

DRUGS (5)
  1. PURSENNID [Concomitant]
     Dosage: UNK
     Route: 065
     Dates: start: 20070510
  2. LEUCOVORIN CALCIUM [Suspect]
     Route: 042
     Dates: start: 20071023, end: 20071023
  3. FLUOROURACIL [Suspect]
     Route: 042
     Dates: start: 20071024, end: 20071024
  4. BEVACIZUMAB [Suspect]
     Route: 042
     Dates: start: 20071023, end: 20071023
  5. ELPLAT [Suspect]
     Indication: RECTAL CANCER RECURRENT
     Route: 042
     Dates: start: 20071023, end: 20071023

REACTIONS (1)
  - GASTROINTESTINAL NECROSIS [None]
